FAERS Safety Report 4521991-4 (Version None)
Quarter: 2004Q4

REPORT INFORMATION
  Report Type: 
  Country: None (occurrence: None)
  Receive Date: 20041206
  Receipt Date: 20041123
  Transmission Date: 20050328
  Serious: Yes (Death)
  Sender: FDA-Public Use
  Company Number: 04-000828

PATIENT
  Age: 18 Year
  Sex: Female

DRUGS (1)
  1. OVCON 50 28 DAY TREATMENT (ETHINYLESTRADIOL, NORETHINDRONE) TABLET,  5 [Suspect]
     Indication: METRORRHAGIA
     Dosage: 50/1000UG, QD, ORAL
     Route: 048

REACTIONS (1)
  - PULMONARY EMBOLISM [None]
